FAERS Safety Report 4365726-7 (Version None)
Quarter: 2004Q2

REPORT INFORMATION
  Report Type: 
  Country: None (occurrence: None)
  Receive Date: 20040520
  Receipt Date: 20040507
  Transmission Date: 20050107
  Serious: Yes (Hospitalization, Other)
  Sender: FDA-Public Use
  Company Number: 2004022821

PATIENT
  Age: 35 Year
  Sex: Male

DRUGS (4)
  1. ZOLOFT [Suspect]
     Indication: SCHIZOPHRENIA, RESIDUAL TYPE
     Dosage: 50 MG (1 IN 1 D), ORAL
     Route: 048
     Dates: start: 20030816, end: 20040325
  2. RISPERDAL [Suspect]
     Indication: DEPRESSION
     Dosage: 2 MG, ORAL
     Route: 048
     Dates: start: 20021122, end: 20040330
  3. ALL OTHER THERAPEUTIC PRODUCTS (ALL OTHER THERAPEUTIC PRODUCTS) [Suspect]
     Indication: ILL-DEFINED DISORDER
  4. DIAZEPAM [Concomitant]

REACTIONS (4)
  - DRUG INTERACTION [None]
  - IMPRISONMENT [None]
  - PRIAPISM [None]
  - SEXUAL DYSFUNCTION [None]
